FAERS Safety Report 19039783 (Version 2)
Quarter: 2021Q2

REPORT INFORMATION
  Report Type: Spontaneous
  Country: QA (occurrence: QA)
  Receive Date: 20210322
  Receipt Date: 20210414
  Transmission Date: 20210717
  Serious: Yes (Hospitalization, Other)
  Sender: FDA-Public Use
  Company Number: QA-PFIZER INC-2021267463

PATIENT
  Age: 58 Year
  Sex: Female

DRUGS (2)
  1. METHYLPREDNISOLONE ACETATE. [Suspect]
     Active Substance: METHYLPREDNISOLONE ACETATE
     Indication: OSTEOARTHRITIS
     Dosage: FLUOROSCOPY?GUIDED INTRA?ARTICULAR
     Route: 014
  2. BUPIVACAINE. [Concomitant]
     Active Substance: BUPIVACAINE
     Indication: OSTEOARTHRITIS
     Dosage: FLUOROSCOPY?GUIDED INTRA?ARTICULAR
     Route: 014

REACTIONS (1)
  - Osteonecrosis [Recovered/Resolved]
